FAERS Safety Report 6803060-3 (Version None)
Quarter: 2010Q2

REPORT INFORMATION
  Report Type: 
  Country: None (occurrence: None)
  Receive Date: 20100628
  Receipt Date: 20100614
  Transmission Date: 20101027
  Serious: Yes (Other)
  Sender: FDA-Public Use
  Company Number: PHHY2010JP39751

PATIENT
  Sex: Male

DRUGS (6)
  1. FAMVIR [Suspect]
     Indication: HERPES ZOSTER
     Dosage: 750 MG
     Route: 048
     Dates: start: 20100517, end: 20100519
  2. FAMVIR [Suspect]
     Dosage: 500 MG
     Route: 048
     Dates: start: 20100520, end: 20100521
  3. LOXONIN [Concomitant]
     Dosage: UNK
     Dates: start: 20100517, end: 20100521
  4. GASTER [Concomitant]
     Dosage: UNK
     Dates: start: 20100517, end: 20100524
  5. AZUNOL [Concomitant]
     Dosage: UNK
     Dates: start: 20100517
  6. CALONAL [Concomitant]
     Dosage: UNK
     Dates: start: 20100520, end: 20100521

REACTIONS (13)
  - ASPARTATE AMINOTRANSFERASE INCREASED [None]
  - BLISTER [None]
  - DECREASED APPETITE [None]
  - ERYTHEMA [None]
  - GAMMA-GLUTAMYLTRANSFERASE INCREASED [None]
  - HEADACHE [None]
  - LIVER DISORDER [None]
  - LYMPHOCYTE COUNT [None]
  - MALAISE [None]
  - MONOCYTE COUNT INCREASED [None]
  - NAUSEA [None]
  - PLATELET COUNT DECREASED [None]
  - WHITE BLOOD CELL COUNT DECREASED [None]
